FAERS Safety Report 22295703 (Version 2)
Quarter: 2023Q2

REPORT INFORMATION
  Report Type: Spontaneous
  Country: None (occurrence: US)
  Receive Date: 20230508
  Receipt Date: 20230516
  Transmission Date: 20230722
  Serious: Yes (Hospitalization)
  Sender: FDA-Public Use
  Company Number: US-Mission Pharmacal Company-2141226

PATIENT
  Age: 47 Year
  Sex: Female

DRUGS (1)
  1. THIOLA EC [Suspect]
     Active Substance: TIOPRONIN
     Indication: Cystinuria
     Route: 048
     Dates: start: 20220824

REACTIONS (3)
  - Drug ineffective [Unknown]
  - Infection [Unknown]
  - Pyrexia [Unknown]
